FAERS Safety Report 10866605 (Version 1)
Quarter: 2015Q1

REPORT INFORMATION
  Report Type: Spontaneous
  Country: US (occurrence: None)
  Receive Date: 20150220
  Receipt Date: 20150220
  Transmission Date: 20150721
  Serious: No
  Sender: FDA-Public Use
  Company Number: None

PATIENT
  Age: 28 Year
  Sex: Female
  Weight: 88.45 kg

DRUGS (1)
  1. NEXPLANON [Suspect]
     Active Substance: ETONOGESTREL
     Indication: CONTRACEPTION
     Dosage: 3 YEARS  GIVEN INTO/UNDER THE SKIN
     Route: 058
     Dates: start: 20120705, end: 20150219

REACTIONS (6)
  - Headache [None]
  - Muscle spasms [None]
  - Thrombosis [None]
  - Weight increased [None]
  - Drug ineffective [None]
  - Menstruation irregular [None]
